FAERS Safety Report 13214025 (Version 1)
Quarter: 2017Q1

REPORT INFORMATION
  Report Type: Other
  Country: PT (occurrence: PT)
  Receive Date: 20170210
  Receipt Date: 20170210
  Transmission Date: 20170428
  Serious: Yes (Life-Threatening)
  Sender: FDA-Public Use
  Company Number: PT-CELLTRION INC.-2017PT001205

PATIENT

DRUGS (4)
  1. MESALAZINE [Concomitant]
     Active Substance: MESALAMINE
     Dosage: 3 G, UNK
     Route: 048
     Dates: start: 20161219
  2. REMSIMA [Suspect]
     Active Substance: INFLIXIMAB
     Indication: COLITIS ULCERATIVE
     Dosage: UNK
     Route: 065
     Dates: start: 20160706, end: 20160706
  3. REMSIMA [Suspect]
     Active Substance: INFLIXIMAB
     Dosage: UNK
     Route: 065
     Dates: start: 20170102, end: 20170102
  4. REMICADE [Concomitant]
     Active Substance: INFLIXIMAB
     Dosage: 5 MG, UNK
     Route: 042
     Dates: start: 20160706

REACTIONS (3)
  - Stridor [Recovered/Resolved]
  - Dyspnoea [Recovered/Resolved]
  - Anaphylactic shock [Recovered/Resolved]

NARRATIVE: CASE EVENT DATE: 20170102
